FAERS Safety Report 10144037 (Version 1)
Quarter: 2014Q2

REPORT INFORMATION
  Report Type: Spontaneous
  Country: US (occurrence: US)
  Receive Date: 20140430
  Receipt Date: 20140430
  Transmission Date: 20141212
  Serious: No
  Sender: FDA-Public Use
  Company Number: US-ASTRAZENECA-2014SE26845

PATIENT
  Sex: Male

DRUGS (2)
  1. RHINOCORT AQUA [Suspect]
     Dosage: UNKNOWN UNK
     Route: 045
  2. SYMBICORT [Suspect]
     Dosage: 80/4.5, 2 PUFFS BID
     Route: 055

REACTIONS (3)
  - Dyspnoea [Unknown]
  - Injury associated with device [Unknown]
  - Circumstance or information capable of leading to medication error [Unknown]
